FAERS Safety Report 8920487 (Version 1)
Quarter: 2012Q4

REPORT INFORMATION
  Report Type: 
  Country: FR (occurrence: FR)
  Receive Date: 20121121
  Receipt Date: 20121121
  Transmission Date: 20130627
  Serious: Yes (Hospitalization)
  Sender: FDA-Public Use
  Company Number: FR-B.I. PHARMACEUTICALS,INC./RIDGEFIELD-2012-FF-01615FF

PATIENT
  Age: 71 Year
  Sex: Male

DRUGS (2)
  1. PRADAXA [Suspect]
     Indication: ARRHYTHMIA
     Dosage: 220 mg
     Route: 048
  2. MEDICATION NOT FURTHER SPECIFIED [Concomitant]

REACTIONS (3)
  - Presyncope [Recovered/Resolved]
  - Fall [Recovered/Resolved]
  - Meningorrhagia [Recovered/Resolved]
